FAERS Safety Report 6212968-1 (Version None)
Quarter: 2009Q2

REPORT INFORMATION
  Report Type: 
  Country: None (occurrence: None)
  Receive Date: 20090603
  Receipt Date: 20090528
  Transmission Date: 20091009
  Serious: Yes (Death, Life-Threatening, Hospitalization)
  Sender: FDA-Public Use
  Company Number: FR-ABBOTT-09P-056-0576295-00

PATIENT
  Sex: Female

DRUGS (5)
  1. LIPANTHYL [Suspect]
     Indication: HYPERCHOLESTEROLAEMIA
     Route: 048
     Dates: start: 20030101, end: 20090314
  2. ARAVA [Suspect]
     Indication: RHEUMATOID ARTHRITIS
     Dates: start: 20090313, end: 20090314
  3. LOPRESSOR [Suspect]
     Indication: HYPERTENSION
     Route: 048
     Dates: start: 20010101, end: 20090314
  4. ZOLOFT [Suspect]
     Indication: DEPRESSION
     Route: 048
     Dates: start: 20050505, end: 20090314
  5. INOCID [Suspect]
     Indication: RHEUMATOID ARTHRITIS
     Route: 048
     Dates: start: 20070101, end: 20090314

REACTIONS (1)
  - PULMONARY EMBOLISM [None]
